FAERS Safety Report 4788812-6 (Version None)
Quarter: 2005Q4

REPORT INFORMATION
  Report Type: 
  Country: None (occurrence: None)
  Receive Date: 20051004
  Receipt Date: 20050921
  Transmission Date: 20060501
  Serious: Yes (Life-Threatening, Hospitalization, Disabling)
  Sender: FDA-Public Use
  Company Number: 2005127314

PATIENT
  Age: 72 Year
  Sex: Female

DRUGS (1)
  1. AZITHROMYCIN [Suspect]
     Indication: TONSILLITIS
     Dosage: 500 MG (500 MG, QD), ORAL
     Route: 048
     Dates: start: 20050822, end: 20050824

REACTIONS (4)
  - CENTRAL PONTINE MYELINOLYSIS [None]
  - COMA [None]
  - MYDRIASIS [None]
  - PYREXIA [None]
